FAERS Safety Report 8595345-8 (Version None)
Quarter: 2012Q3

REPORT INFORMATION
  Report Type: 
  Country: None (occurrence: None)
  Receive Date: 20120815
  Receipt Date: 20120813
  Transmission Date: 20120928
  Serious: Yes (Hospitalization, Other)
  Sender: FDA-Public Use
  Company Number: PHEH2010US03844

PATIENT
  Sex: Male

DRUGS (55)
  1. ACETAMINOPHEN [Concomitant]
  2. FLUNISOLIDE [Concomitant]
  3. HYDROMORPHONE HYDROCHLORIDE [Concomitant]
     Dosage: 4 MG, QID
     Route: 048
  4. LEVOTHYROXINE SODIUM [Concomitant]
     Dosage: 1 DF, QD
     Route: 048
  5. ENOXAPARIN [Concomitant]
  6. METHOCARBAMOL [Concomitant]
     Dosage: 1 DF, TID
     Route: 048
  7. MAGNESIUM HYDROXIDE TAB [Concomitant]
  8. HYDROCHLOROTHIAZIDE [Concomitant]
  9. AMOXICILLIN [Concomitant]
     Dosage: 1 DF, Q8H
     Route: 048
  10. PREDNISONE TAB [Concomitant]
  11. LEVETIRACETAM [Concomitant]
     Dosage: 4 DF, BID
     Route: 048
  12. TRIMETHOPRIM [Concomitant]
  13. CROMOLYN SODIUM [Concomitant]
     Dosage: 2 DRP, QID
  14. DIPHENHYDRAMINE HCL [Concomitant]
     Dosage: 1 DF, Q6H
     Route: 048
  15. VENLAFAXINE HYDROCHOLRIDE [Concomitant]
     Dosage: 1 DF, QHS
     Route: 048
  16. ZOMETA [Suspect]
     Dosage: 4 MG, QMO
  17. CODEINE SULFATE [Concomitant]
  18. AMPICILLIN [Concomitant]
     Route: 042
  19. CHLORHEXIDINE GLUCONATE [Concomitant]
  20. OMEPRAZOLE [Concomitant]
     Dosage: 20 MG, BID
     Route: 048
  21. PERCOCET [Concomitant]
  22. OXYCODONE HYDROCHLORIDE [Concomitant]
     Dosage: 1 DF, BID
     Route: 048
  23. WARFARIN SODIUM [Concomitant]
     Dosage: 1 DF, QHS
     Route: 048
  24. ALBUTEROL [Concomitant]
     Route: 048
  25. SULFAMETHOXAZOLE [Concomitant]
     Route: 048
  26. CLINDAMYCIN [Concomitant]
     Route: 042
  27. TEMAZEPAM [Concomitant]
     Dosage: 30 MG, QD
     Route: 048
  28. INDOMETHACIN [Concomitant]
  29. CHLORPHENIRAMINE MALEATE [Concomitant]
  30. DILAUDID [Concomitant]
  31. ACYCLOVIR [Concomitant]
     Dosage: 1 DF, Q4H
     Route: 048
  32. FLUCONAZOLE [Concomitant]
  33. RANITIDINE HYDROCHLORIDE [Concomitant]
     Dosage: 1 DF, BID
     Route: 048
  34. ZOLOFT [Concomitant]
  35. NEUPOGEN [Concomitant]
     Dosage: 420 UG, BID
     Route: 058
  36. VANCOMYCIN [Concomitant]
     Dosage: 2 G/500 ML, UNK
     Route: 042
  37. CEFTAZIDIME [Concomitant]
  38. STEROIDS NOS [Suspect]
  39. KEFZOL [Concomitant]
     Route: 042
  40. MULTI-VITAMINS [Concomitant]
     Route: 048
  41. ZESTRIL [Concomitant]
  42. TRAZODONE HCL [Concomitant]
     Dosage: 2 DF, QHS
     Route: 048
  43. CARISOPRODOL [Concomitant]
     Dosage: 1 DF, QID
  44. DARBEPOETIN ALFA [Concomitant]
     Route: 058
  45. SALSALATE [Concomitant]
     Dosage: 1 DF, TID
     Route: 048
  46. FELODIPINE [Concomitant]
     Dosage: 1 DF, QD
     Route: 048
  47. DICLOFENAC SODIUM [Concomitant]
     Dosage: 1 DF, BID
     Route: 048
  48. PENICILLIN VK [Concomitant]
     Route: 048
  49. MOMETASONE FUROATE [Concomitant]
  50. IBUPROFEN [Concomitant]
  51. GABAPENTIN [Concomitant]
     Dosage: 1 DF, QHS
     Route: 048
  52. CYCLOBENZAPRINE HCL [Concomitant]
     Dosage: 1 DF, TID
     Route: 048
  53. PROCHLORPERAZINE MALEATE [Concomitant]
     Dosage: 2 DF, TID
     Route: 048
  54. BORTEZOMIB [Concomitant]
     Route: 042
  55. SOMA [Concomitant]
     Dosage: 350 MG, TID

REACTIONS (100)
  - INFECTION [None]
  - HYPERTENSION [None]
  - MYOPIA [None]
  - BLEPHARITIS [None]
  - PERICARDIAL EFFUSION [None]
  - ANGIOEDEMA [None]
  - THROMBOCYTOPENIA [None]
  - LYMPHOMA [None]
  - DEEP VEIN THROMBOSIS POSTOPERATIVE [None]
  - PHYSICAL DISABILITY [None]
  - EXPOSED BONE IN JAW [None]
  - PRIMARY SEQUESTRUM [None]
  - INGUINAL HERNIA [None]
  - ASTHMA [None]
  - DISTURBANCE IN ATTENTION [None]
  - PHARYNGITIS [None]
  - NAUSEA [None]
  - DRY EYE [None]
  - INSOMNIA [None]
  - DIARRHOEA [None]
  - HYPERSENSITIVITY [None]
  - CHOLECYSTITIS [None]
  - PYREXIA [None]
  - FALL [None]
  - BONE LESION [None]
  - NEUROPATHY PERIPHERAL [None]
  - SWELLING FACE [None]
  - HYPOTHYROIDISM [None]
  - ADRENAL INSUFFICIENCY [None]
  - OSTEOARTHRITIS [None]
  - EAR PAIN [None]
  - ARTHRALGIA [None]
  - HERPES SIMPLEX [None]
  - CHOLELITHIASIS [None]
  - ATELECTASIS [None]
  - ANXIETY [None]
  - LEUKAEMIA [None]
  - MULTIPLE MYELOMA [None]
  - CONVULSION [None]
  - ANHEDONIA [None]
  - GENERALISED OEDEMA [None]
  - HYPOXIA [None]
  - ORTHOSTATIC HYPOTENSION [None]
  - MUSCLE SPASMS [None]
  - BACK PAIN [None]
  - PAIN IN EXTREMITY [None]
  - MACROGLOSSIA [None]
  - TREMOR [None]
  - EXOSTOSIS [None]
  - OEDEMA PERIPHERAL [None]
  - DYSPHAGIA [None]
  - STRESS [None]
  - TOOTH LOSS [None]
  - HEPATITIS C [None]
  - CARPAL TUNNEL SYNDROME [None]
  - RIB FRACTURE [None]
  - METASTASES TO BONE [None]
  - OSTEOLYSIS [None]
  - NEUTROPENIA [None]
  - SINUS BRADYCARDIA [None]
  - LOSS OF LIBIDO [None]
  - COUGH [None]
  - CONJUNCTIVITIS ALLERGIC [None]
  - CERVICOBRACHIAL SYNDROME [None]
  - PERIORBITAL HAEMORRHAGE [None]
  - CHONDROCALCINOSIS [None]
  - HEPATITIS B [None]
  - PRESYNCOPE [None]
  - PRESBYOPIA [None]
  - CATARACT [None]
  - ABDOMINAL PAIN [None]
  - ANAEMIA [None]
  - SPEECH DISORDER [None]
  - CONSTIPATION [None]
  - ARTHRITIS [None]
  - VENOUS THROMBOSIS [None]
  - SYNCOPE [None]
  - CLAVICLE FRACTURE [None]
  - MYALGIA [None]
  - MENTAL STATUS CHANGES [None]
  - MAGNESIUM METABOLISM DISORDER [None]
  - OSTEONECROSIS OF JAW [None]
  - INJURY [None]
  - ADJUSTMENT DISORDER [None]
  - OSTEOPENIA [None]
  - NECK PAIN [None]
  - MYOPATHY [None]
  - DEHYDRATION [None]
  - BONE DEFORMITY [None]
  - PAIN [None]
  - DEFORMITY [None]
  - AMYLOIDOSIS [None]
  - DEPRESSION [None]
  - JOINT SWELLING [None]
  - SPONDYLOLISTHESIS [None]
  - ACTINOMYCOSIS [None]
  - DYSPNOEA [None]
  - MEMORY IMPAIRMENT [None]
  - HYPERCALCAEMIA [None]
  - HYPOVOLAEMIA [None]
